FAERS Safety Report 9395080 (Version 2)
Quarter: 2013Q3

REPORT INFORMATION
  Report Type: Spontaneous
  Country: US (occurrence: US)
  Receive Date: 20130711
  Receipt Date: 20130906
  Transmission Date: 20140515
  Serious: Yes (Other)
  Sender: FDA-Public Use
  Company Number: US-NOVOPROD-380356

PATIENT
  Age: 47 Year
  Sex: Female

DRUGS (1)
  1. LEVEMIR FLEXPEN [Suspect]
     Indication: TYPE 2 DIABETES MELLITUS
     Dosage: UNK
     Route: 058
     Dates: start: 20130603

REACTIONS (2)
  - Syncope [Recovered/Resolved]
  - Blood glucose increased [Recovered/Resolved]
